FAERS Safety Report 16930082 (Version 1)
Quarter: 2019Q4

REPORT INFORMATION
  Report Type: Spontaneous
  Country: CH (occurrence: CH)
  Receive Date: 20191017
  Receipt Date: 20191017
  Transmission Date: 20200122
  Serious: Yes (Death)
  Sender: FDA-Public Use
  Company Number: CH-B.I. PHARMACEUTICALS,INC./RIDGEFIELD-2019-BI-107763

PATIENT
  Age: 9 Decade
  Sex: Female

DRUGS (1)
  1. OFEV [Suspect]
     Active Substance: NINTEDANIB
     Indication: IDIOPATHIC PULMONARY FIBROSIS
     Route: 065
     Dates: start: 2017, end: 201909

REACTIONS (3)
  - Pulmonary hypertension [Fatal]
  - Diarrhoea [Unknown]
  - Right ventricular failure [Fatal]

NARRATIVE: CASE EVENT DATE: 201909
